FAERS Safety Report 20085654 (Version 1)
Quarter: 2021Q4

REPORT INFORMATION
  Report Type: Spontaneous
  Country: US (occurrence: None)
  Receive Date: 20211117
  Receipt Date: 20211117
  Transmission Date: 20220303
  Serious: Yes (Death)
  Sender: FDA-Public Use
  Company Number: None

PATIENT
  Age: 71 Year
  Sex: Male
  Weight: 62.55 kg

DRUGS (10)
  1. RYDAPT [Suspect]
     Active Substance: MIDOSTAURIN
     Indication: Malignant mast cell neoplasm
     Dosage: FREQUENCY : TWICE A DAY;?
     Route: 048
     Dates: start: 20200220, end: 20211113
  2. ALBUTEROL [Concomitant]
     Active Substance: ALBUTEROL
  3. BENZONATATE [Concomitant]
     Active Substance: BENZONATATE
  4. CITRIZINE [Concomitant]
  5. DICYCLOMINE [Concomitant]
     Active Substance: DICYCLOMINE HYDROCHLORIDE
  6. DIOVAN [Concomitant]
     Active Substance: VALSARTAN
  7. VITAMINS [Concomitant]
     Active Substance: VITAMINS
  8. SYMBICORT [Concomitant]
     Active Substance: BUDESONIDE\FORMOTEROL FUMARATE DIHYDRATE
  9. TYLENOL [Concomitant]
     Active Substance: ACETAMINOPHEN
  10. VITAMIN K [Concomitant]
     Active Substance: PHYTONADIONE

REACTIONS (1)
  - Haemorrhagic stroke [None]

NARRATIVE: CASE EVENT DATE: 20211113
